FAERS Safety Report 24437250 (Version 1)
Quarter: 2024Q4

REPORT INFORMATION
  Report Type: Spontaneous
  Country: US (occurrence: None)
  Receive Date: 20241011
  Receipt Date: 20241011
  Transmission Date: 20250115
  Serious: No
  Sender: Public
  Company Number: None

PATIENT
  Age: 70 Year
  Sex: Female

DRUGS (2)
  1. KISQALI [Suspect]
     Active Substance: RIBOCICLIB
     Indication: Breast cancer
     Dosage: OTHER FREQUENCY : CYCLE;?
     Route: 048
     Dates: start: 20240730, end: 20241011
  2. LETROZOLE [Concomitant]
     Active Substance: LETROZOLE
     Dates: start: 20240725, end: 20241011

REACTIONS (7)
  - Rash [None]
  - Diarrhoea [None]
  - Hypotension [None]
  - White blood cell count decreased [None]
  - Therapy cessation [None]
  - Mucosal inflammation [None]
  - Fatigue [None]

NARRATIVE: CASE EVENT DATE: 20241011
